FAERS Safety Report 18267251 (Version 8)
Quarter: 2021Q1

REPORT INFORMATION
  Report Type: Report from Study
  Country: CA (occurrence: CA)
  Receive Date: 20200915
  Receipt Date: 20210225
  Transmission Date: 20210419
  Serious: Yes (Other)
  Sender: FDA-Public Use
  Company Number: CA-BAUSCH-BL-2020-013022

PATIENT
  Age: 38 Year
  Sex: Male

DRUGS (4)
  1. SILIQ [Suspect]
     Active Substance: BRODALUMAB
     Dosage: 210 MG/ 1.5 ML
     Route: 058
     Dates: start: 20200511, end: 20200903
  2. SILIQ [Suspect]
     Active Substance: BRODALUMAB
     Dosage: 210 MG/ 1.5 ML
     Route: 058
     Dates: start: 2020, end: 2020
  3. SILIQ [Suspect]
     Active Substance: BRODALUMAB
     Dosage: 210 MG/ 1.5 ML
     Route: 058
     Dates: start: 20201222, end: 20210202
  4. SILIQ [Suspect]
     Active Substance: BRODALUMAB
     Indication: PSORIASIS
     Dosage: 210 MG/ 1.5 ML, AT WEEK 0, 1 AND 2
     Route: 058
     Dates: start: 20200413, end: 20200427

REACTIONS (11)
  - Arthralgia [Unknown]
  - Patient dissatisfaction with treatment [Unknown]
  - Therapy interrupted [Unknown]
  - Inappropriate schedule of product administration [Unknown]
  - Suicidal ideation [Unknown]
  - Pruritus [Unknown]
  - Thinking abnormal [Unknown]
  - Abnormal dreams [Unknown]
  - Psoriasis [Recovering/Resolving]
  - Premature ageing [Unknown]
  - Therapy cessation [Unknown]

NARRATIVE: CASE EVENT DATE: 2020
